FAERS Safety Report 19287917 (Version 1)
Quarter: 2021Q2

REPORT INFORMATION
  Report Type: Spontaneous
  Country: IT (occurrence: IT)
  Receive Date: 20210521
  Receipt Date: 20210521
  Transmission Date: 20210717
  Serious: Yes (Other)
  Sender: FDA-Public Use
  Company Number: IT-CELGENEUS-ITA-20210501979

PATIENT
  Age: 64 Year
  Sex: Female

DRUGS (2)
  1. ABRAXANE [Suspect]
     Active Substance: PACLITAXEL
     Indication: ADENOCARCINOMA PANCREAS
     Route: 042
     Dates: start: 20200611
  2. GEMCITABINE. [Concomitant]
     Active Substance: GEMCITABINE
     Indication: ADENOCARCINOMA PANCREAS
     Route: 065

REACTIONS (3)
  - Hepatotoxicity [Unknown]
  - Hepatic steatosis [Unknown]
  - Myelosuppression [Unknown]

NARRATIVE: CASE EVENT DATE: 20210304
